FAERS Safety Report 7792154-4 (Version None)
Quarter: 2011Q4

REPORT INFORMATION
  Report Type: 
  Country: None (occurrence: None)
  Receive Date: 20111003
  Receipt Date: 20111003
  Transmission Date: 20120403
  Serious: Yes (Hospitalization, Other)
  Sender: FDA-Public Use
  Company Number: None

PATIENT
  Sex: Female
  Weight: 113.39 kg

DRUGS (1)
  1. DEPAKOTE [Suspect]
     Indication: BIPOLAR I DISORDER
     Dates: start: 20091224, end: 20100103

REACTIONS (9)
  - HALLUCINATION [None]
  - COGNITIVE DISORDER [None]
  - NERVOUS SYSTEM DISORDER [None]
  - BRADYPHRENIA [None]
  - BALANCE DISORDER [None]
  - AMNESIA [None]
  - FEELING ABNORMAL [None]
  - DYSGRAPHIA [None]
  - ASTHENIA [None]
